FAERS Safety Report 5830858-0 (Version None)
Quarter: 2008Q3

REPORT INFORMATION
  Report Type: 
  Country: None (occurrence: None)
  Receive Date: 20080801
  Receipt Date: 20080724
  Transmission Date: 20090109
  Serious: Yes (Other)
  Sender: FDA-Public Use
  Company Number: IR-ALLERGAN-0809195US

PATIENT
  Sex: Female

DRUGS (3)
  1. PREDNISOLONE ACETATE, 1.0% [Suspect]
     Indication: DRUG USE FOR UNKNOWN INDICATION
     Route: 047
  2. DICLOFENAC SODIUM [Suspect]
     Route: 047
  3. TRIAMCINOLONE ACETONIDE [Suspect]
     Route: 047

REACTIONS (2)
  - DRUG INEFFECTIVE [None]
  - VISUAL ACUITY REDUCED [None]
